FAERS Safety Report 13705368 (Version 1)
Quarter: 2017Q2

REPORT INFORMATION
  Report Type: Spontaneous
  Country: US (occurrence: US)
  Receive Date: 20170629
  Receipt Date: 20170629
  Transmission Date: 20170830
  Serious: No
  Sender: FDA-Public Use
  Company Number: None

PATIENT
  Age: 62 Year
  Sex: Female

DRUGS (2)
  1. EPCLUSA [Suspect]
     Active Substance: SOFOSBUVIR\VELPATASVIR
  2. RIBAVIRIN TAB 200MG [Suspect]
     Active Substance: RIBAVIRIN

REACTIONS (1)
  - Ocular icterus [None]

NARRATIVE: CASE EVENT DATE: 20170629
